FAERS Safety Report 9338983 (Version 1)
Quarter: 2013Q2

REPORT INFORMATION
  Report Type: Spontaneous
  Country: JP (occurrence: JP)
  Receive Date: 20130610
  Receipt Date: 20130610
  Transmission Date: 20140414
  Serious: Yes (Other)
  Sender: FDA-Public Use
  Company Number: PHHY2013JP045596

PATIENT
  Age: 46 Year
  Sex: Male

DRUGS (3)
  1. HEPARIN [Suspect]
     Indication: ATRIAL FIBRILLATION
     Dosage: 110?10^3 IU
     Route: 042
  2. HEPARIN [Suspect]
     Dosage: 10X10^3 IU/DAY
     Route: 042
  3. WARFARIN [Concomitant]
     Indication: ATRIAL FIBRILLATION

REACTIONS (5)
  - Liver disorder [Recovered/Resolved]
  - Heparin-induced thrombocytopenia [Recovered/Resolved]
  - Haemorrhage [Recovered/Resolved]
  - Haematoma [Recovered/Resolved]
  - Ecchymosis [Recovered/Resolved]
